FAERS Safety Report 4704056-8 (Version None)
Quarter: 2005Q2

REPORT INFORMATION
  Report Type: 
  Country: None (occurrence: None)
  Receive Date: 20050628
  Receipt Date: 20050614
  Transmission Date: 20051028
  Serious: Yes (Death, Hospitalization)
  Sender: FDA-Public Use
  Company Number: USA0506100524

PATIENT
  Age: 91 Year
  Sex: Female

DRUGS (9)
  1. EVISTA [Suspect]
     Indication: OSTEOPOROSIS
  2. AMOXICILLIN [Concomitant]
  3. MIACALCIN [Concomitant]
  4. CALCIUM GLUCONATE [Concomitant]
  5. PREDNISONE [Concomitant]
  6. ASPIRIN [Concomitant]
  7. CARDIZEM [Concomitant]
  8. LANOLIN (DIGOXIN) [Concomitant]
  9. FOLIC ACID [Concomitant]

REACTIONS (2)
  - PNEUMONIA [None]
  - TOOTH INFECTION [None]
